FAERS Safety Report 7726608-3 (Version None)
Quarter: 2011Q3

REPORT INFORMATION
  Report Type: 
  Country: None (occurrence: None)
  Receive Date: 20110902
  Receipt Date: 20110819
  Transmission Date: 20111222
  Serious: No
  Sender: FDA-Public Use
  Company Number: CA-ELI_LILLY_AND_COMPANY-CA201108006098

PATIENT
  Sex: Female

DRUGS (11)
  1. ZYPREXA [Suspect]
     Dosage: 20 MG, EACH EVENING
  2. LITHIUM CARBONATE [Concomitant]
  3. ATIVAN [Concomitant]
  4. SERTRALINE HYDROCHLORIDE [Concomitant]
  5. ARIMIDEX [Concomitant]
  6. ZYPREXA [Suspect]
     Dosage: 10 MG, EACH EVENING
  7. ZYPREXA [Suspect]
     Dosage: 5 MG, EACH EVENING
     Dates: start: 19970101
  8. ZYPREXA [Suspect]
     Dosage: 15 MG, EACH EVENING
  9. RISPERIDONE [Concomitant]
  10. AROMASIN [Concomitant]
  11. CARBAMAZEPINE [Concomitant]

REACTIONS (4)
  - SLEEP APNOEA SYNDROME [None]
  - DIABETES MELLITUS [None]
  - DYSLIPIDAEMIA [None]
  - HAEMATOCRIT INCREASED [None]
